FAERS Safety Report 4873057-1 (Version None)
Quarter: 2006Q1

REPORT INFORMATION
  Report Type: 
  Country: None (occurrence: None)
  Receive Date: 20060104
  Receipt Date: 20060104
  Transmission Date: 20060701
  Serious: Yes (Life-Threatening)
  Sender: FDA-Public Use
  Company Number: None

PATIENT
  Age: 44 Year
  Sex: Male
  Weight: 64.5 kg

DRUGS (1)
  1. HURRICAINE SPRAY 20%     BEUTLICH, L.P. [Suspect]
     Indication: ANAESTHESIA
     Dosage: ONCE  TOP
     Route: 061
     Dates: start: 20051214, end: 20051214

REACTIONS (4)
  - BLOOD METHAEMOGLOBIN PRESENT [None]
  - CYANOSIS [None]
  - OXYGEN SATURATION DECREASED [None]
  - POST PROCEDURAL COMPLICATION [None]
